FAERS Safety Report 15581202 (Version 1)
Quarter: 2018Q4

REPORT INFORMATION
  Report Type: Spontaneous
  Country: None (occurrence: US)
  Receive Date: 20181105
  Receipt Date: 20181105
  Transmission Date: 20190205
  Serious: No
  Sender: FDA-Public Use
  Company Number: US-UNICHEM PHARMACEUTICALS (USA) INC-UCM201805-000125

PATIENT
  Sex: Female

DRUGS (2)
  1. LAMOTRIGINE 150 MG TABLETS [Suspect]
     Active Substance: LAMOTRIGINE
     Route: 048
  2. LAMICTAL [Suspect]
     Active Substance: LAMOTRIGINE

REACTIONS (1)
  - Drug ineffective [Unknown]
